FAERS Safety Report 24133456 (Version 1)
Quarter: 2024Q3

REPORT INFORMATION
  Report Type: Spontaneous
  Country: US (occurrence: None)
  Receive Date: 20240724
  Receipt Date: 20240724
  Transmission Date: 20241017
  Serious: Yes (Life-Threatening, Other)
  Sender: Public
  Company Number: None

PATIENT
  Age: 51 Year
  Sex: Male
  Weight: 94.05 kg

DRUGS (1)
  1. WEGOVY [Suspect]
     Active Substance: SEMAGLUTIDE
     Indication: Weight decreased
     Dates: start: 20240519, end: 20240707

REACTIONS (2)
  - Suicidal ideation [None]
  - Therapy cessation [None]

NARRATIVE: CASE EVENT DATE: 20240709
